FAERS Safety Report 9918219 (Version 2)
Quarter: 2014Q1

REPORT INFORMATION
  Report Type: Report from Study
  Country: US (occurrence: US)
  Receive Date: 20140224
  Receipt Date: 20140224
  Transmission Date: 20141002
  Serious: Yes (Other)
  Sender: FDA-Public Use
  Company Number: US-ROCHE-1304037

PATIENT
  Sex: Female

DRUGS (6)
  1. LUCENTIS [Suspect]
     Indication: MACULAR DEGENERATION
     Route: 050
  2. AVASTIN [Suspect]
     Indication: MACULAR DEGENERATION
     Route: 050
     Dates: start: 20131107
  3. DIOVAN [Concomitant]
     Indication: HYPERTENSION
  4. LEVOTHYROXINE [Concomitant]
  5. ASPIRIN [Concomitant]
     Route: 065
  6. CRESTOR [Concomitant]

REACTIONS (4)
  - Eye discharge [Unknown]
  - Macular degeneration [Unknown]
  - Eye pain [Unknown]
  - Lacrimation increased [Unknown]
